FAERS Safety Report 5744277-9 (Version None)
Quarter: 2008Q2

REPORT INFORMATION
  Report Type: 
  Country: None (occurrence: None)
  Receive Date: 20080520
  Receipt Date: 20080512
  Transmission Date: 20081010
  Serious: Yes (Hospitalization)
  Sender: FDA-Public Use
  Company Number: JP-MERCK-0804USA05599

PATIENT
  Age: 87 Year
  Sex: Female

DRUGS (5)
  1. TRUSOPT [Suspect]
     Indication: OPEN ANGLE GLAUCOMA
     Route: 047
     Dates: start: 20080303, end: 20080305
  2. XALATAN [Concomitant]
     Indication: OCULAR HYPERTENSION
     Route: 047
  3. HYPADIL [Concomitant]
     Indication: OCULAR HYPERTENSION
     Route: 047
     Dates: start: 20070420
  4. BRONUCK [Concomitant]
     Indication: CATARACT OPERATION
     Route: 047
     Dates: start: 20080212
  5. HYALEIN [Concomitant]
     Indication: PROPHYLAXIS
     Route: 047

REACTIONS (2)
  - CHOROIDAL DETACHMENT [None]
  - INTRAOCULAR PRESSURE INCREASED [None]
